FAERS Safety Report 15625767 (Version 1)
Quarter: 2018Q4

REPORT INFORMATION
  Report Type: Spontaneous
  Country: US (occurrence: US)
  Receive Date: 20181116
  Receipt Date: 20181116
  Transmission Date: 20190205
  Serious: No
  Sender: FDA-Public Use
  Company Number: US-GLAXOSMITHKLINE-US2018201301

PATIENT
  Sex: Female

DRUGS (1)
  1. VENTOLIN [Suspect]
     Active Substance: ALBUTEROL SULFATE
     Indication: PRODUCT USED FOR UNKNOWN INDICATION
     Route: 055

REACTIONS (5)
  - Asthma [Not Recovered/Not Resolved]
  - Wrong technique in product usage process [Unknown]
  - Hypersensitivity [Not Recovered/Not Resolved]
  - Product dose omission [Unknown]
  - Wrong technique in device usage process [Unknown]
